FAERS Safety Report 13088857 (Version 1)
Quarter: 2016Q4

REPORT INFORMATION
  Report Type: Spontaneous
  Country: US (occurrence: US)
  Receive Date: 20161231
  Receipt Date: 20161231
  Transmission Date: 20170207
  Serious: Yes (Life-Threatening, Other)
  Sender: FDA-Public Use
  Company Number: None

PATIENT
  Age: 29 Year
  Sex: Female
  Weight: 68 kg

DRUGS (8)
  1. VITAMIN C [Concomitant]
     Active Substance: ASCORBIC ACID
  2. MAGNESIUM [Concomitant]
     Active Substance: MAGNESIUM
  3. LEVLEN [Suspect]
     Active Substance: ETHINYL ESTRADIOL\LEVONORGESTREL
     Indication: CONTRACEPTION
     Dosage: ?          QUANTITY:1 TABLET(S);?
     Route: 048
  4. CALCIUM [Concomitant]
     Active Substance: CALCIUM
  5. SERTRALINE [Concomitant]
     Active Substance: SERTRALINE HYDROCHLORIDE
  6. XALRETO [Concomitant]
  7. CLEXANE [Concomitant]
     Active Substance: ENOXAPARIN SODIUM
  8. VITAMIN B [Concomitant]
     Active Substance: VITAMIN B

REACTIONS (4)
  - Anxiety [None]
  - Deep vein thrombosis [None]
  - Thrombophlebitis superficial [None]
  - Depression [None]

NARRATIVE: CASE EVENT DATE: 20161129
